FAERS Safety Report 15866397 (Version 1)
Quarter: 2019Q1

REPORT INFORMATION
  Report Type: Spontaneous
  Country: US (occurrence: US)
  Receive Date: 20190102
  Receipt Date: 20190102
  Transmission Date: 20190417
  Serious: Yes (Hospitalization, Other)
  Sender: FDA-Public Use
  Company Number: None

PATIENT
  Age: 70 Year
  Sex: Female

DRUGS (7)
  1. LEVOFLOX [Concomitant]
     Active Substance: LEVOFLOXACIN
  2. CARDIZEM [Concomitant]
     Active Substance: DILTIAZEM HYDROCHLORIDE
  3. REBIF [Suspect]
     Active Substance: INTERFERON BETA-1A
     Indication: MULTIPLE SCLEROSIS
     Dosage: 44/0.5 UG/ML; 1 PFS TIW AS DIRECTED?
     Dates: start: 20141231
  4. PRAVACHOL [Concomitant]
     Active Substance: PRAVASTATIN SODIUM
  5. BUFPIRIN [Concomitant]
  6. VANCOMY/DEX [Concomitant]
  7. VESICARE [Concomitant]
     Active Substance: SOLIFENACIN SUCCINATE

REACTIONS (4)
  - Therapy cessation [None]
  - Bladder disorder [None]
  - Diplopia [None]
  - Visual impairment [None]
